FAERS Safety Report 19235415 (Version 6)
Quarter: 2022Q3

REPORT INFORMATION
  Report Type: Spontaneous
  Country: CA (occurrence: CA)
  Receive Date: 20210510
  Receipt Date: 20220917
  Transmission Date: 20221026
  Serious: Yes (Other)
  Sender: FDA-Public Use
  Company Number: CA-CELLTRION INC.-2020CA020508

PATIENT

DRUGS (22)
  1. INFLECTRA [Suspect]
     Active Substance: INFLIXIMAB-DYYB
     Indication: Rheumatoid arthritis
     Dosage: 500 MG, EVERY 4 WEEKS
     Route: 042
     Dates: start: 20200204
  2. INFLECTRA [Suspect]
     Active Substance: INFLIXIMAB-DYYB
     Indication: Colitis ulcerative
     Dosage: 500 MG, EVERY 4 WEEKS
     Route: 042
     Dates: start: 20200922
  3. INFLECTRA [Suspect]
     Active Substance: INFLIXIMAB-DYYB
     Dosage: 500 MG, EVERY 4 WEEKS
     Route: 042
     Dates: start: 20201020
  4. INFLECTRA [Suspect]
     Active Substance: INFLIXIMAB-DYYB
     Dosage: 500 MG, EVERY 4 WEEKS
     Route: 042
     Dates: start: 20201109
  5. INFLECTRA [Suspect]
     Active Substance: INFLIXIMAB-DYYB
     Dosage: 500 MG, EVERY 4 WEEKS
     Route: 042
     Dates: start: 20210423
  6. INFLECTRA [Suspect]
     Active Substance: INFLIXIMAB-DYYB
     Dosage: 500 MG, EVERY 4 WEEKS
     Route: 042
     Dates: start: 20210820
  7. INFLECTRA [Suspect]
     Active Substance: INFLIXIMAB-DYYB
     Dosage: 500 MG, EVERY 4 WEEKS
     Route: 042
     Dates: start: 20220805
  8. MESALAMINE [Concomitant]
     Active Substance: MESALAMINE
     Dosage: 2 G,1X/DAY(OD)
     Route: 048
  9. MESALAMINE [Concomitant]
     Active Substance: MESALAMINE
     Dosage: 2 G, 1X/DAY
     Route: 048
  10. MESALAMINE [Concomitant]
     Active Substance: MESALAMINE
     Dosage: 2 G, 1X/DAY
     Route: 048
  11. MESALAMINE [Concomitant]
     Active Substance: MESALAMINE
     Dosage: 2 GRAM
     Route: 048
  12. MESALAMINE [Concomitant]
     Active Substance: MESALAMINE
     Dosage: 2 G, 1X/DAY, DRUG STATUS UNAVAILABLE
     Route: 048
  13. CORTISONE [Concomitant]
     Active Substance: CORTISONE
     Indication: Rheumatoid arthritis
     Dosage: UNK
  14. FOLIC ACID [Concomitant]
     Active Substance: FOLIC ACID
     Dosage: , DOSAGE INFORMATION AND DRUG STATUS ARE UNAVAILABLE1 DF
     Route: 065
  15. HYDROCORTISONE [Concomitant]
     Active Substance: HYDROCORTISONE
     Indication: Premedication
     Dosage: 100 MG
     Route: 042
     Dates: start: 20210423, end: 20210423
  16. HYDROCORTISONE [Concomitant]
     Active Substance: HYDROCORTISONE
     Dosage: 100 MG
     Dates: start: 20210820, end: 20210820
  17. METHOTREXATE [Concomitant]
     Active Substance: METHOTREXATE
     Dosage: 1 DF, DOSAGE INFORMATION UNAVAILABLE
     Route: 065
  18. PROBIOTICS NOS [Concomitant]
     Active Substance: PROBIOTICS NOS
     Dosage: 1 DF, DOSAGE INFORMATION AND DRUG STATUS ARE UNAVAILABLE
     Route: 065
  19. RABEPRAZOLE [Concomitant]
     Active Substance: RABEPRAZOLE
     Dosage: 20 MG, 1X/DAY(OD), DRUG STATUS UNAVAILABLE
     Route: 065
  20. THYROXINE [Concomitant]
     Active Substance: LEVOTHYROXINE
     Dosage: 1 DF, DOSAGE INFORMATION AND DRUG STATUS ARE UNAVAILABLE
     Route: 065
  21. VITAMIN B12 [Concomitant]
     Active Substance: CYANOCOBALAMIN
     Dosage: UNK
  22. VITAMIN D3 [Concomitant]
     Active Substance: CHOLECALCIFEROL
     Dosage: 1 DF, DOSAGE INFORMATION AND DRUG STATUS ARE UNAVAILABLE
     Route: 065

REACTIONS (9)
  - Blood pressure fluctuation [Unknown]
  - Drug ineffective [Unknown]
  - Off label use [Unknown]
  - Body temperature decreased [Unknown]
  - Drug level above therapeutic [Unknown]
  - Heart rate decreased [Unknown]
  - Pain [Unknown]
  - Upper respiratory tract infection [Recovering/Resolving]
  - Weight decreased [Not Recovered/Not Resolved]

NARRATIVE: CASE EVENT DATE: 20200204
